FAERS Safety Report 5642705-0 (Version None)
Quarter: 2008Q1

REPORT INFORMATION
  Report Type: 
  Country: None (occurrence: None)
  Receive Date: 20080226
  Receipt Date: 20080219
  Transmission Date: 20080703
  Serious: Yes (Death)
  Sender: FDA-Public Use
  Company Number: E2020-02296-SPO-JP

PATIENT
  Age: 79 Year
  Sex: Female
  Weight: 33 kg

DRUGS (4)
  1. ARICEPT [Suspect]
     Indication: DEMENTIA
     Dosage: 5 MG, 1 IN 1 D, ORAL
     Route: 048
     Dates: start: 20080119
  2. FAMOTIDINE [Suspect]
     Indication: DRUG USE FOR UNKNOWN INDICATION
     Dosage: 20 MG, ORAL
     Route: 048
     Dates: start: 20080119
  3. ASPIRIN [Suspect]
     Dosage: 100 MG, ORAL
     Route: 048
     Dates: start: 20080119
  4. YOKUKAN-SAN (YOKUKAN-SAN) [Suspect]
     Dosage: 5 GM, ORAL
     Route: 048
     Dates: start: 20080119

REACTIONS (6)
  - ANOREXIA [None]
  - DAYDREAMING [None]
  - DECUBITUS ULCER [None]
  - DEHYDRATION [None]
  - DYSPHAGIA [None]
  - PURULENCE [None]
